FAERS Safety Report 5939827-3 (Version None)
Quarter: 2008Q4

REPORT INFORMATION
  Report Type: 
  Country: None (occurrence: None)
  Receive Date: 20081104
  Receipt Date: 20081024
  Transmission Date: 20090506
  Serious: Yes (Other)
  Sender: FDA-Public Use
  Company Number: CA-JNJFOC-20070306785

PATIENT
  Sex: Male
  Weight: 114.2 kg

DRUGS (1)
  1. REMICADE [Suspect]
     Indication: ANKYLOSING SPONDYLITIS
     Dosage: 9 INFUSIONS TOTAL
     Route: 042

REACTIONS (1)
  - IRITIS [None]
